FAERS Safety Report 8445847-X (Version None)
Quarter: 2012Q2

REPORT INFORMATION
  Report Type: 
  Country: None (occurrence: None)
  Receive Date: 20120618
  Receipt Date: 20120614
  Transmission Date: 20120825
  Serious: Yes (Other)
  Sender: FDA-Public Use
  Company Number: MX-PFIZER INC-2012143817

PATIENT
  Sex: Female

DRUGS (1)
  1. CORTRIL [Suspect]
     Dosage: 10 MG, UNK
     Route: 048

REACTIONS (1)
  - DRUG DEPENDENCE [None]
